FAERS Safety Report 19192493 (Version 3)
Quarter: 2022Q2

REPORT INFORMATION
  Report Type: Spontaneous
  Country: US (occurrence: US)
  Receive Date: 20210428
  Receipt Date: 20220503
  Transmission Date: 20220721
  Serious: No
  Sender: FDA-Public Use
  Company Number: US-PFIZER INC-2021364376

PATIENT
  Age: 64 Year
  Sex: Female

DRUGS (3)
  1. INLYTA [Suspect]
     Active Substance: AXITINIB
     Dosage: 5 MG
     Dates: start: 20210101, end: 2021
  2. INLYTA [Suspect]
     Active Substance: AXITINIB
     Dosage: 1 MG
     Dates: start: 20210222, end: 20210401
  3. INLYTA [Suspect]
     Active Substance: AXITINIB
     Dosage: 1 MG
     Dates: start: 20201230

REACTIONS (5)
  - Blood pressure abnormal [Unknown]
  - Diarrhoea [Not Recovered/Not Resolved]
  - Quality of life decreased [Unknown]
  - Fatigue [Unknown]
  - Emotional disorder [Unknown]

NARRATIVE: CASE EVENT DATE: 20210101
